FAERS Safety Report 4440227-6 (Version None)
Quarter: 2004Q3

REPORT INFORMATION
  Report Type: 
  Country: None (occurrence: None)
  Receive Date: 20040831
  Receipt Date: 20040831
  Transmission Date: 20050211
  Serious: Yes (Other)
  Sender: FDA-Public Use
  Company Number: None

PATIENT
  Age: 33 Year
  Sex: Female
  Weight: 56.6996 kg

DRUGS (1)
  1. AOSEPT CLEAR CARE 12 FL OZ CIBAVISION CORPORATION [Suspect]
     Dosage: STORE/RINSE OVERNIGHT OPHTHALMIC
     Route: 047

REACTIONS (3)
  - EYE BURNS [None]
  - EYE REDNESS [None]
  - MEDICATION ERROR [None]
